FAERS Safety Report 11545351 (Version 1)
Quarter: 2015Q3

REPORT INFORMATION
  Report Type: Spontaneous
  Country: FR (occurrence: FR)
  Receive Date: 20150924
  Receipt Date: 20150924
  Transmission Date: 20151125
  Serious: Yes (Hospitalization)
  Sender: FDA-Public Use
  Company Number: FR-WARNER CHILCOTT, LLC-1042251

PATIENT
  Age: 71 Year
  Sex: Female

DRUGS (8)
  1. CORTANCYL [Suspect]
     Active Substance: PREDNISONE
     Route: 048
  2. INEXIUM [Suspect]
     Active Substance: ESOMEPRAZOLE
     Route: 048
  3. ZOPICLONE [Suspect]
     Active Substance: ZOPICLONE
     Route: 048
  4. ACTONEL [Suspect]
     Active Substance: RISEDRONATE SODIUM
     Route: 048
  5. KARDEGIC [Suspect]
     Active Substance: ASPIRIN LYSINE
     Route: 048
  6. CRESTOR [Suspect]
     Active Substance: ROSUVASTATIN CALCIUM
     Route: 048
  7. CALCIDOSE [Suspect]
     Active Substance: CALCIUM CARBONATE
     Route: 048
  8. PRETERAX [Suspect]
     Active Substance: INDAPAMIDE\PERINDOPRIL
     Route: 048

REACTIONS (1)
  - Axonal neuropathy [Not Recovered/Not Resolved]

NARRATIVE: CASE EVENT DATE: 201406
